FAERS Safety Report 7563983-7 (Version None)
Quarter: 2011Q2

REPORT INFORMATION
  Report Type: 
  Country: None (occurrence: None)
  Receive Date: 20110622
  Receipt Date: 20110613
  Transmission Date: 20111010
  Serious: Yes (Hospitalization)
  Sender: FDA-Public Use
  Company Number: AT-ROCHE-783107

PATIENT
  Age: 42 Year
  Sex: Male
  Weight: 73 kg

DRUGS (7)
  1. LEUCOVORIN CALCIUM [Suspect]
     Indication: COLORECTAL CANCER
     Dosage: ON DAY 1 DATE OF LAST DOSE: 27 APRIL 2011
     Route: 042
     Dates: start: 20110316
  2. BEVACIZUMAB [Suspect]
     Indication: COLORECTAL CANCER
     Dosage: ON DAY 1 DATE OF LAST DOSE: 27 APRIL 2011
     Route: 042
     Dates: start: 20110316
  3. PANTOPRAZOLE SODIUM [Concomitant]
     Route: 048
     Dates: start: 20110307
  4. FLUOROURACIL [Suspect]
     Indication: COLORECTAL CANCER
     Dosage: ON DAY 1-2, DATE OF LAST DOSE: 28 APRIL 2011
     Route: 042
     Dates: start: 20110316
  5. POTASSIUM CHLORIDE [Concomitant]
     Route: 048
     Dates: start: 20110511, end: 20110516
  6. IRINOTECAN HYDROCHLORIDE [Suspect]
     Indication: COLORECTAL CANCER
     Dosage: ON DAY 1 DATE OF LAST DOSE: 27 APRIL 2011
     Route: 042
     Dates: start: 20110316
  7. ALPRAZOLAM [Concomitant]
     Route: 048
     Dates: start: 20110511, end: 20110516

REACTIONS (4)
  - PYREXIA [None]
  - ASTHENIA [None]
  - TACHYCARDIA [None]
  - DYSPNOEA [None]
